FAERS Safety Report 8888293 (Version 1)
Quarter: 2012Q4

REPORT INFORMATION
  Report Type: 
  Country: US (occurrence: US)
  Receive Date: 20121106
  Receipt Date: 20121106
  Transmission Date: 20130627
  Serious: No
  Sender: FDA-Public Use
  Company Number: US-PFIZER INC-2012274327

PATIENT
  Age: 56 Year
  Sex: Male
  Weight: 136 kg

DRUGS (4)
  1. CELEBREX [Suspect]
     Indication: PSORIATIC ARTHRITIS
     Dosage: 200 mg, 1x/day
     Route: 048
     Dates: start: 2012, end: 201209
  2. CELEBREX [Suspect]
     Indication: OSTEOARTHRITIS
  3. METHOTREXATE [Concomitant]
     Indication: PSORIATIC ARTHRITIS
     Dosage: UNK
  4. PREDNISONE [Concomitant]
     Indication: PSORIATIC ARTHRITIS
     Dosage: UNK

REACTIONS (1)
  - Pain [Not Recovered/Not Resolved]
